FAERS Safety Report 9108237 (Version 1)
Quarter: 2013Q1

REPORT INFORMATION
  Report Type: Spontaneous
  Country: US (occurrence: US)
  Receive Date: 20130222
  Receipt Date: 20130222
  Transmission Date: 20140127
  Serious: Yes (Other)
  Sender: FDA-Public Use
  Company Number: US-JNJCP-30000142855

PATIENT
  Sex: Female
  Weight: 86 kg

DRUGS (4)
  1. NEUTROGENA AGELESS INTENSIVES DEEP WRINKLE MOISTURE SPF20 [Suspect]
     Indication: SKIN WRINKLING
     Dosage: DIME SIZE AMOUNT ONCE A DAY
     Route: 061
  2. DIOVAN [Concomitant]
     Indication: HYPERTENSION
     Dosage: 320MG A DAY SINCE A MONTH
  3. NEUTROGENA HEALTHY SKIN ANTI-WRINKLE CREAM SPF 15 [Suspect]
     Indication: SKIN WRINKLING
     Dosage: DIME SIZE AMOUNT ONCE A DAY
     Route: 061
  4. NEUTROGENA NATURALS PURIFYING FACIAL CLEANSER [Suspect]
     Indication: REMOVAL OF INERT MATTER FROM SKIN OR SUBCUTANEOUS TISSUE
     Dosage: ONE PUMP TWO TIMES A DAY
     Route: 061

REACTIONS (5)
  - Application site pain [Not Recovered/Not Resolved]
  - Application site pain [Not Recovered/Not Resolved]
  - Psoriasis [Not Recovered/Not Resolved]
  - Application site rash [Not Recovered/Not Resolved]
  - Application site pruritus [None]
